FAERS Safety Report 6254968-1 (Version None)
Quarter: 2009Q3

REPORT INFORMATION
  Report Type: 
  Country: None (occurrence: None)
  Receive Date: 20090702
  Receipt Date: 20090625
  Transmission Date: 20100115
  Serious: Yes (Other)
  Sender: FDA-Public Use
  Company Number: US-MERCK-0809USA01987

PATIENT
  Sex: Male

DRUGS (5)
  1. JANUMET [Suspect]
     Route: 048
     Dates: end: 20080807
  2. COUMADIN [Concomitant]
     Route: 065
  3. CRESTOR [Concomitant]
     Route: 065
  4. CARDIZEM LA [Concomitant]
     Route: 065
  5. JANUVIA [Suspect]
     Route: 048

REACTIONS (1)
  - PANCREATITIS [None]
